FAERS Safety Report 19728357 (Version 1)
Quarter: 2021Q3

REPORT INFORMATION
  Report Type: Spontaneous
  Country: US (occurrence: US)
  Receive Date: 20210820
  Receipt Date: 20210820
  Transmission Date: 20211014
  Serious: Yes (Hospitalization)
  Sender: FDA-Public Use
  Company Number: US-FRESENIUS KABI-FK202108736

PATIENT
  Age: 68 Year
  Sex: Male
  Weight: 95 kg

DRUGS (10)
  1. PROCHLORPERAZINE. [Concomitant]
     Active Substance: PROCHLORPERAZINE
     Indication: VOMITING
  2. SENNOSIDE A+B/DOCUSATE SODIUM [Concomitant]
     Indication: CONSTIPATION
     Dosage: 8.6?50 MG?SENOKOT S (SENNOSIDE A+B, DOCUSATE SODIUM)
     Route: 048
     Dates: start: 20210727, end: 20210728
  3. IBRUTINIB [Suspect]
     Active Substance: IBRUTINIB
     Indication: CHRONIC LYMPHOCYTIC LEUKAEMIA
     Dosage: IBRUTINIB (IBRUTINIB, CROSCARMELLOSE SODIUM, MAGNESIUM STEARATE, MICROCRYSTALLINE CELLULOSE, SODIUM
     Route: 048
     Dates: start: 20210714
  4. LISOCABTAGENE MARALEUCEL. [Suspect]
     Active Substance: LISOCABTAGENE MARALEUCEL
     Indication: CHRONIC LYMPHOCYTIC LEUKAEMIA
     Dosage: 100 X 10^6 CAR+T CELLS
     Route: 042
     Dates: start: 20210719, end: 20210719
  5. SENNOSIDE A+B/DOCUSATE SODIUM [Concomitant]
     Dosage: 8.6?50 MG?SENOKOT S (SENNOSIDE A+B, DOCUSATE SODIUM)
     Route: 048
     Dates: start: 20210728, end: 20210728
  6. CYCLOPHOSPHAMIDE. [Suspect]
     Active Substance: CYCLOPHOSPHAMIDE
     Indication: CHRONIC LYMPHOCYTIC LEUKAEMIA
     Dosage: CYCLOPHOSPHAMIDE INJECTION FOR INFUSION
     Route: 042
     Dates: start: 20210714, end: 20210716
  7. ONDANSETRON [Concomitant]
     Active Substance: ONDANSETRON
     Indication: VOMITING
  8. PROCHLORPERAZINE. [Concomitant]
     Active Substance: PROCHLORPERAZINE
     Indication: NAUSEA
     Dosage: ONGOING
     Route: 048
     Dates: start: 20210727
  9. FLUDARABINE [Suspect]
     Active Substance: FLUDARABINE PHOSPHATE
     Indication: CHRONIC LYMPHOCYTIC LEUKAEMIA
     Dosage: FLUDARABINE INJECTION FOR INFUSION
     Route: 042
     Dates: start: 20210714, end: 20210716
  10. ONDANSETRON [Concomitant]
     Active Substance: ONDANSETRON
     Indication: NAUSEA
     Dosage: ONGOING
     Route: 048
     Dates: start: 20210727

REACTIONS (2)
  - Febrile neutropenia [Recovered/Resolved]
  - Cytokine release syndrome [Recovered/Resolved]

NARRATIVE: CASE EVENT DATE: 20210727
